FAERS Safety Report 4382540-7 (Version None)
Quarter: 2004Q2

REPORT INFORMATION
  Report Type: 
  Country: None (occurrence: None)
  Receive Date: 20040608
  Receipt Date: 20040524
  Transmission Date: 20050107
  Serious: Yes (Other)
  Sender: FDA-Public Use
  Company Number: 601279

PATIENT

DRUGS (2)
  1. TISSEEL VH KIT [Suspect]
     Indication: BACK DISORDER
     Dosage: TOPICAL
     Route: 061
     Dates: start: 20040101, end: 20040101
  2. TISSEEL VH KIT [Suspect]
     Indication: SURGERY
     Dosage: TOPICAL
     Route: 061
     Dates: start: 20040101, end: 20040101

REACTIONS (2)
  - SURGICAL PROCEDURE REPEATED [None]
  - THROMBOSIS [None]
